FAERS Safety Report 25847037 (Version 1)
Quarter: 2025Q3

REPORT INFORMATION
  Report Type: Report from Study
  Country: PH (occurrence: PH)
  Receive Date: 20250925
  Receipt Date: 20250925
  Transmission Date: 20251020
  Serious: Yes (Hospitalization, Other)
  Sender: OTSUKA
  Company Number: PH-MMM-Otsuka-ELGVHS91

PATIENT

DRUGS (2)
  1. TOLVAPTAN [Suspect]
     Active Substance: TOLVAPTAN
     Indication: Blood creatinine increased
     Dosage: 1 DF, QD (15 MG 1 TABLET AT LUNCH)
     Route: 048
     Dates: start: 202504, end: 20250824
  2. TOLVAPTAN [Suspect]
     Active Substance: TOLVAPTAN
     Indication: Oedema
     Route: 065
     Dates: start: 202509

REACTIONS (4)
  - Dialysis [Unknown]
  - Vomiting [Unknown]
  - Abdominal pain upper [Unknown]
  - Product use in unapproved indication [Unknown]

NARRATIVE: CASE EVENT DATE: 20250401
